FAERS Safety Report 7911423-8 (Version None)
Quarter: 2011Q4

REPORT INFORMATION
  Report Type: 
  Country: None (occurrence: None)
  Receive Date: 20111101
  Receipt Date: 20110610
  Transmission Date: 20120403
  Serious: Yes (Other)
  Sender: FDA-Public Use
  Company Number: AUR-APL-2011-03000

PATIENT
  Age: 75 Year
  Sex: Female
  Weight: 90.7 kg

DRUGS (7)
  1. SIMVASTATIN [Suspect]
     Indication: PERIPHERAL VASCULAR DISORDER
     Dosage: 80 MG,  1 D
     Dates: start: 20110401
  2. LISINOPRIL [Concomitant]
  3. METOPROLOL TARTRATE [Suspect]
     Indication: BLOOD PRESSURE ABNORMAL
     Dosage: 100 MG (50 MG, 2 IN 1 D)
     Dates: end: 20110401
  4. AMLODIPINE [Concomitant]
  5. CARVEDILOL [Suspect]
     Indication: BLOOD PRESSURE ABNORMAL
     Dosage: 50 MG (25 MG, 2 IN 1 D)
     Dates: start: 20110401
  6. PLAVIX [Concomitant]
  7. LIPITOR [Suspect]
     Indication: PERIPHERAL VASCULAR DISORDER
     Dosage: 1 D, ORAL
     Route: 048
     Dates: end: 20110401

REACTIONS (1)
  - OEDEMA PERIPHERAL [None]
